FAERS Safety Report 5149509-6 (Version None)
Quarter: 2006Q4

REPORT INFORMATION
  Report Type: 
  Country: None (occurrence: None)
  Receive Date: 20061113
  Receipt Date: 20060224
  Transmission Date: 20070319
  Serious: No
  Sender: FDA-Public Use
  Company Number: US-GLAXOSMITHKLINE-A0595132A

PATIENT
  Age: 62 Year
  Sex: Female

DRUGS (2)
  1. COREG [Suspect]
     Dosage: 50MG TWICE PER DAY
     Route: 048
     Dates: start: 20051017
  2. ALTACE [Concomitant]

REACTIONS (1)
  - DIZZINESS [None]
